FAERS Safety Report 4278214-3 (Version None)
Quarter: 2004Q1

REPORT INFORMATION
  Report Type: 
  Country: None (occurrence: None)
  Receive Date: 20040123
  Receipt Date: 20040114
  Transmission Date: 20041129
  Serious: Yes (Death, Hospitalization)
  Sender: FDA-Public Use
  Company Number: FR-BRISTOL-MYERS SQUIBB COMPANY-12477964

PATIENT
  Age: 59 Year
  Sex: Male
  Weight: 68 kg

DRUGS (4)
  1. TAXOL [Suspect]
     Indication: LUNG NEOPLASM MALIGNANT
     Route: 042
     Dates: start: 20030910, end: 20030910
  2. RANIPLEX [Concomitant]
     Indication: PREMEDICATION
     Dates: start: 20030910, end: 20030910
  3. POLARAMINE [Concomitant]
     Indication: PREMEDICATION
     Dates: start: 20020910, end: 20030910
  4. SOLU-MEDROL [Concomitant]
     Indication: PREMEDICATION
     Dates: start: 20030910, end: 20030910

REACTIONS (7)
  - CHEST PAIN [None]
  - DYSPNOEA [None]
  - INTERSTITIAL LUNG DISEASE [None]
  - LUNG NEOPLASM MALIGNANT [None]
  - MALAISE [None]
  - RESPIRATORY FAILURE [None]
  - TACHYCARDIA [None]
